FAERS Safety Report 8199391-8 (Version None)
Quarter: 2012Q1

REPORT INFORMATION
  Report Type: 
  Country: None (occurrence: None)
  Receive Date: 20120309
  Receipt Date: 20120228
  Transmission Date: 20120608
  Serious: Yes (Hospitalization)
  Sender: FDA-Public Use
  Company Number: DE-ROCHE-1043822

PATIENT
  Sex: Male
  Weight: 87 kg

DRUGS (6)
  1. BENDAMUSTINE [Suspect]
     Indication: MALIGNANT LYMPHOID NEOPLASM
     Dosage: DATE OF LAST DOSE PRIOR TO SAE:25/JAN/2012
     Route: 042
     Dates: start: 20111220
  2. RANITIDINE [Concomitant]
     Dates: start: 20120228, end: 20120228
  3. CLEMASTINE FUMARATE [Concomitant]
     Dates: start: 20120228, end: 20120228
  4. MABTHERA [Suspect]
     Indication: MALIGNANT LYMPHOID NEOPLASM
     Dosage: DATE OF LAST DOSE PRIOR TO SAE:28/FEB/2012
     Route: 042
     Dates: start: 20111220, end: 20120228
  5. SODIUM CHLORIDE [Concomitant]
     Dates: start: 20120228, end: 20120228
  6. PREDNISOLONE [Concomitant]
     Dates: start: 20120228, end: 20120228

REACTIONS (1)
  - SYNCOPE [None]
